FAERS Safety Report 15712813 (Version 2)
Quarter: 2019Q1

REPORT INFORMATION
  Report Type: Spontaneous
  Country: US (occurrence: US)
  Receive Date: 20181212
  Receipt Date: 20190212
  Transmission Date: 20190417
  Serious: No
  Sender: FDA-Public Use
  Company Number: US-009507513-1811USA005908

PATIENT
  Age: 8 Year
  Sex: Female

DRUGS (12)
  1. CEFAZOLIN [Concomitant]
     Active Substance: CEFAZOLIN
     Indication: STAPHYLOCOCCAL OSTEOMYELITIS
     Dosage: UNK
     Route: 042
  2. DOXYCYCLINE. [Concomitant]
     Active Substance: DOXYCYCLINE
     Indication: STAPHYLOCOCCAL OSTEOMYELITIS
     Dosage: UNK
  3. SINGULAIR [Suspect]
     Active Substance: MONTELUKAST SODIUM
     Dosage: 5 MILLIGRAM, DAILY (60 MINUTES BEFORE EVENING DOSE OF CLINDAMYCIN)
     Route: 048
     Dates: start: 20161026, end: 20161207
  4. CLINDAMYCIN. [Concomitant]
     Active Substance: CLINDAMYCIN
     Dosage: 300 MILLIGRAM, EVERY 8 HOURS
     Route: 048
     Dates: start: 20161025, end: 20161207
  5. CETIRIZINE HYDROCHLORIDE. [Concomitant]
     Active Substance: CETIRIZINE HYDROCHLORIDE
     Indication: IMMUNE TOLERANCE INDUCTION
     Dosage: 10 MILLIGRAM, QD
     Route: 048
  6. VANCOMYCIN [Concomitant]
     Active Substance: VANCOMYCIN
     Indication: OSTEOMYELITIS
     Dosage: UNK
  7. CETIRIZINE HYDROCHLORIDE. [Concomitant]
     Active Substance: CETIRIZINE HYDROCHLORIDE
     Dosage: 10 MILLIGRAM, Q8H (60 MINUTES BEFORE EACH DOSE OF CLINDAMMYCIN)
     Route: 048
     Dates: start: 20161025, end: 20161207
  8. RANITIDINE. [Concomitant]
     Active Substance: RANITIDINE
     Indication: IMMUNE TOLERANCE INDUCTION
     Dosage: UNK
     Route: 048
  9. SINGULAIR [Suspect]
     Active Substance: MONTELUKAST SODIUM
     Indication: IMMUNE TOLERANCE INDUCTION
     Dosage: UNK
     Route: 048
  10. CLINDAMYCIN. [Concomitant]
     Active Substance: CLINDAMYCIN
     Indication: STAPHYLOCOCCAL OSTEOMYELITIS
     Dosage: UNK
     Route: 048
  11. RANITIDINE. [Concomitant]
     Active Substance: RANITIDINE
     Dosage: 60 MILLIGRAM, Q12H (4 HOURS BEFORE AFTERNOON DOSE, 60 MINUTES BEFORE EVENING DOSE OF CLINDAMYCIN)
     Route: 048
     Dates: start: 20161025, end: 20161207
  12. CEFTRIAXONE. [Concomitant]
     Active Substance: CEFTRIAXONE
     Indication: OSTEOMYELITIS
     Dosage: UNK
     Route: 042

REACTIONS (2)
  - No adverse event [Unknown]
  - Off label use [Unknown]

NARRATIVE: CASE EVENT DATE: 20161026
